FAERS Safety Report 10373756 (Version 1)
Quarter: 2014Q1

REPORT INFORMATION
  Report Type: Spontaneous
  Country: US (occurrence: None)
  Receive Date: 20140306
  Receipt Date: 20140306
  Transmission Date: 20141002
  Serious: Yes (Hospitalization)
  Sender: FDA-Public Use
  Company Number: 163-21880-13051024

PATIENT
  Age: 68 Year
  Sex: Male

DRUGS (6)
  1. REVLIMID (LENALIDOMIDE) (10 MILLIGRAM, CAPSULES) [Suspect]
     Indication: PLASMA CELL MYELOMA
     Dosage: 1 IN 1 D
     Route: 048
     Dates: start: 201205
  2. DECADRON (DEXAMETHASONE) [Concomitant]
  3. OXYCODONE [Concomitant]
  4. PROCRIT (ERYTHROPOIETIN) [Concomitant]
  5. INSULIN [Concomitant]
  6. VELCADE (BORTEZOMIB) [Concomitant]

REACTIONS (2)
  - Deep vein thrombosis [None]
  - Blood immunoglobulin A increased [None]
